FAERS Safety Report 25382816 (Version 1)
Quarter: 2025Q2

REPORT INFORMATION
  Report Type: Spontaneous
  Country: FR (occurrence: FR)
  Receive Date: 20250602
  Receipt Date: 20250602
  Transmission Date: 20250716
  Serious: Yes (Hospitalization, Other)
  Sender: CHEPLAPHARM
  Company Number: None

PATIENT
  Age: 48 Year
  Sex: Male

DRUGS (14)
  1. GANCICLOVIR [Suspect]
     Active Substance: GANCICLOVIR
     Indication: Uveitis
     Route: 031
     Dates: start: 20250415, end: 20250422
  2. ACYCLOVIR [Suspect]
     Active Substance: ACYCLOVIR
     Indication: Vasculitis
     Dosage: DAILY DOSE: 30 MILLIGRAM
     Route: 042
     Dates: start: 20250411, end: 20250422
  3. PROPOFOL [Concomitant]
     Active Substance: PROPOFOL
     Route: 042
     Dates: start: 20250420, end: 20250427
  4. SUFENTANIL [Concomitant]
     Active Substance: SUFENTANIL
     Route: 042
     Dates: start: 20250420, end: 20250427
  5. MIDAZOLAM [Concomitant]
     Active Substance: MIDAZOLAM
     Route: 042
     Dates: start: 20250420, end: 20250427
  6. TYSABRI [Concomitant]
     Active Substance: NATALIZUMAB
     Route: 058
  7. VALPROMIDE [Concomitant]
     Active Substance: VALPROMIDE
     Dosage: DAILY DOSE: 2 DOSAGE FORM
     Route: 048
  8. ALPRAZOLAM [Concomitant]
     Active Substance: ALPRAZOLAM
     Dosage: DAILY DOSE: 0.5 MILLIGRAM
     Route: 048
  9. DALFAMPRIDINE [Concomitant]
     Active Substance: DALFAMPRIDINE
     Dosage: DAILY DOSE: 2 DOSAGE FORM
     Route: 048
  10. PRAMIPEXOLE [Concomitant]
     Active Substance: PRAMIPEXOLE
     Dosage: DAILY DOSE: 1 DOSAGE FORM
     Route: 048
  11. VERAPAMIL HYDROCHLORIDE [Concomitant]
     Active Substance: VERAPAMIL HYDROCHLORIDE
     Dosage: DAILY DOSE: 80 MILLIGRAM
     Route: 048
  12. DUTASTERIDE [Concomitant]
     Active Substance: DUTASTERIDE
     Dosage: DAILY DOSE: 0.5 MILLIGRAM
     Route: 048
  13. SILODOSIN [Concomitant]
     Active Substance: SILODOSIN
     Dosage: DAILY DOSE: 8 MILLIGRAM
     Route: 048
  14. SUMATRIPTAN [Concomitant]
     Active Substance: SUMATRIPTAN
     Route: 045

REACTIONS (2)
  - Cerebral haemorrhage [Not Recovered/Not Resolved]
  - Off label use [Recovered/Resolved]

NARRATIVE: CASE EVENT DATE: 20250415
